FAERS Safety Report 10048487 (Version 1)
Quarter: 2014Q1

REPORT INFORMATION
  Report Type: Spontaneous
  Country: None (occurrence: US)
  Receive Date: 20140331
  Receipt Date: 20140331
  Transmission Date: 20141002
  Serious: Yes (Hospitalization)
  Sender: FDA-Public Use
  Company Number: US-BRISTOL-MYERS SQUIBB COMPANY-20560249

PATIENT
  Sex: Female

DRUGS (1)
  1. YERVOY [Suspect]

REACTIONS (4)
  - Diarrhoea [Unknown]
  - Dehydration [Unknown]
  - Diverticulitis [Unknown]
  - Loss of consciousness [Unknown]
